FAERS Safety Report 24723208 (Version 1)
Quarter: 2024Q4

REPORT INFORMATION
  Report Type: Report from Study
  Country: FR (occurrence: FR)
  Receive Date: 20241211
  Receipt Date: 20241211
  Transmission Date: 20250114
  Serious: Yes (Other)
  Sender: PFIZER
  Company Number: FR-PFIZER INC-202400318240

PATIENT

DRUGS (6)
  1. TORISEL [Suspect]
     Active Substance: TEMSIROLIMUS
     Indication: Mantle cell lymphoma
     Dosage: 25 MG, ADMINISTRATED AT D2, 8 AND 15
  2. DOXORUBICIN HYDROCHLORIDE [Suspect]
     Active Substance: DOXORUBICIN HYDROCHLORIDE
     Indication: Mantle cell lymphoma
     Dosage: UNK, CYCLIC
  3. VINCRISTINE SULFATE [Suspect]
     Active Substance: VINCRISTINE SULFATE
     Indication: Mantle cell lymphoma
     Dosage: UNK, CYCLIC
  4. RITUXIMAB [Suspect]
     Active Substance: RITUXIMAB
     Indication: Mantle cell lymphoma
     Dosage: UNK, CYCLIC
  5. CYCLOPHOSPHAMIDE [Suspect]
     Active Substance: CYCLOPHOSPHAMIDE
     Indication: Mantle cell lymphoma
     Dosage: UNK, CYCLIC
  6. PREDNISONE [Suspect]
     Active Substance: PREDNISONE
     Indication: Mantle cell lymphoma
     Dosage: UNK, CYCLIC

REACTIONS (2)
  - Lymphopenia [Unknown]
  - Gastrointestinal haemorrhage [Unknown]
